FAERS Safety Report 4737653-4 (Version None)
Quarter: 2005Q3

REPORT INFORMATION
  Report Type: 
  Country: None (occurrence: None)
  Receive Date: 20050809
  Receipt Date: 20050607
  Transmission Date: 20060218
  Serious: No
  Sender: FDA-Public Use
  Company Number: US-GLAXOSMITHKLINE-A0561543A

PATIENT
  Age: 36 Year
  Sex: Female

DRUGS (1)
  1. COMMIT [Suspect]
     Route: 002
     Dates: start: 20050524

REACTIONS (3)
  - ERYTHEMA [None]
  - PRURITUS [None]
  - RASH [None]
